FAERS Safety Report 5880993-6 (Version None)
Quarter: 2008Q3

REPORT INFORMATION
  Report Type: 
  Country: None (occurrence: None)
  Receive Date: 20080912
  Receipt Date: 20080616
  Transmission Date: 20090109
  Serious: No
  Sender: FDA-Public Use
  Company Number: US-ABBOTT-08P-163-0457529-00

PATIENT
  Sex: Female
  Weight: 53.572 kg

DRUGS (2)
  1. HUMIRA [Suspect]
     Indication: PSORIATIC ARTHROPATHY
     Route: 050
     Dates: start: 20080523
  2. MULTI-VITAMIN [Concomitant]
     Indication: VITAMIN SUPPLEMENTATION
     Route: 048
     Dates: start: 20050101

REACTIONS (6)
  - HYPOAESTHESIA [None]
  - MIGRAINE [None]
  - PARAESTHESIA [None]
  - SENSORY LOSS [None]
  - VISION BLURRED [None]
  - WOUND INFECTION [None]
